FAERS Safety Report 18734479 (Version 1)
Quarter: 2021Q1

REPORT INFORMATION
  Report Type: Spontaneous
  Country: US (occurrence: US)
  Receive Date: 20210112
  Receipt Date: 20210112
  Transmission Date: 20210419
  Serious: Yes (Other)
  Sender: FDA-Public Use
  Company Number: None

PATIENT
  Age: 60 Year
  Sex: Male
  Weight: 92.25 kg

DRUGS (8)
  1. CINNAMON. [Concomitant]
     Active Substance: CINNAMON
  2. LISINOPRIL. [Concomitant]
     Active Substance: LISINOPRIL
  3. VITAMINS [Concomitant]
     Active Substance: VITAMINS
  4. FISH OIL [Concomitant]
     Active Substance: FISH OIL
  5. VITAMIN D [Concomitant]
     Active Substance: VITAMIN D NOS
  6. PAROEX [Suspect]
     Active Substance: CHLORHEXIDINE GLUCONATE
     Indication: GINGIVAL DISORDER
     Dates: start: 20100101, end: 20210111
  7. VITAMIN C [Concomitant]
     Active Substance: ASCORBIC ACID
  8. METFORMIN [Concomitant]
     Active Substance: METFORMIN HYDROCHLORIDE

REACTIONS (2)
  - Recalled product administered [None]
  - Product contamination microbial [None]

NARRATIVE: CASE EVENT DATE: 20201207
